FAERS Safety Report 17150996 (Version 1)
Quarter: 2019Q4

REPORT INFORMATION
  Report Type: Spontaneous
  Country: US (occurrence: US)
  Receive Date: 20191212
  Receipt Date: 20191212
  Transmission Date: 20200122
  Serious: Yes (Life-Threatening)
  Sender: FDA-Public Use
  Company Number: None

PATIENT
  Age: 76 Year
  Sex: Female
  Weight: 107.6 kg

DRUGS (3)
  1. RIVAROXABAN [Suspect]
     Active Substance: RIVAROXABAN
     Indication: ATRIAL FIBRILLATION
     Route: 048
     Dates: start: 20140716
  2. FLUTICASONE 50MCG SPRAY BID [Concomitant]
  3. MULTIVITAMIN DAILY [Concomitant]

REACTIONS (5)
  - Gastrointestinal haemorrhage [None]
  - Dyspnoea [None]
  - Iron deficiency [None]
  - Asthenia [None]
  - Dizziness [None]

NARRATIVE: CASE EVENT DATE: 20150302
